FAERS Safety Report 16480239 (Version 1)
Quarter: 2019Q2

REPORT INFORMATION
  Report Type: Spontaneous
  Country: US (occurrence: US)
  Receive Date: 20190626
  Receipt Date: 20190626
  Transmission Date: 20190711
  Serious: Yes (Other)
  Sender: FDA-Public Use
  Company Number: PHHY2019US145634

PATIENT
  Age: 10 Year
  Sex: Female

DRUGS (1)
  1. IMIQUIMOD. [Suspect]
     Active Substance: IMIQUIMOD
     Indication: ANOGENITAL WARTS
     Dosage: 1 DF, QW3
     Route: 061

REACTIONS (3)
  - Therapy non-responder [Unknown]
  - Haemorrhage [Unknown]
  - Product use issue [Unknown]
